FAERS Safety Report 17365470 (Version 1)
Quarter: 2020Q1

REPORT INFORMATION
  Report Type: Spontaneous
  Country: US (occurrence: US)
  Receive Date: 20200204
  Receipt Date: 20200204
  Transmission Date: 20200409
  Serious: Yes (Other)
  Sender: FDA-Public Use
  Company Number: US-MYLANLABS-2020M1011750

PATIENT
  Age: 43 Year
  Sex: Female

DRUGS (6)
  1. GEMCITABINE. [Suspect]
     Active Substance: GEMCITABINE
     Indication: UTERINE LEIOMYOSARCOMA
     Dosage: DAY 1 AND DAY 8 OF 21-DAY CYCLE; COMPLETED 6 CYCLES
     Route: 065
  2. OLARATUMAB [Suspect]
     Active Substance: OLARATUMAB
     Indication: UTERINE LEIOMYOSARCOMA
     Dosage: DAY 1 AND DAY 8 OF 21-DAY CYCLE
     Route: 065
  3. DOXORUBICIN [Concomitant]
     Active Substance: DOXORUBICIN
     Indication: UTERINE LEIOMYOSARCOMA
     Dosage: DAY 1 OF 21-DAY CYCLE
     Route: 065
  4. DOCETAXEL. [Suspect]
     Active Substance: DOCETAXEL
     Indication: UTERINE LEIOMYOSARCOMA
     Dosage: ON DAY 8 OF 21-DAY CYCLE; COMPLETED 6 CYCLES
     Route: 065
  5. PAZOPANIB [Suspect]
     Active Substance: PAZOPANIB
     Indication: UTERINE LEIOMYOSARCOMA
     Dosage: 9 CYCLES COMPLETED
     Route: 065
  6. TRABECTEDIN [Suspect]
     Active Substance: TRABECTEDIN
     Indication: UTERINE LEIOMYOSARCOMA
     Dosage: DAY 1 OF A 21 DAY CYCLE)
     Route: 065

REACTIONS (1)
  - Drug ineffective [Unknown]
